FAERS Safety Report 6490864-2 (Version None)
Quarter: 2009Q4

REPORT INFORMATION
  Report Type: 
  Country: None (occurrence: None)
  Receive Date: 20091211
  Receipt Date: 20091130
  Transmission Date: 20100525
  Serious: Yes (Other)
  Sender: FDA-Public Use
  Company Number: DE-PFIZER INC-2009286834

PATIENT
  Age: 12 Year
  Sex: Female
  Weight: 57.4 kg

DRUGS (2)
  1. SUTENT [Suspect]
     Indication: EWING'S SARCOMA RECURRENT
     Dosage: 12.5 MG, 1X/DAY
     Route: 048
     Dates: start: 20090922, end: 20091012
  2. TRAMAL [Suspect]
     Indication: PAIN
     Dosage: 30 DF, 1X/DAY
     Route: 048
     Dates: start: 20091007

REACTIONS (3)
  - DRUG INTERACTION [None]
  - PAIN [None]
  - TACHYCARDIA [None]
